FAERS Safety Report 10398353 (Version 1)
Quarter: 2014Q1

REPORT INFORMATION
  Report Type: Spontaneous
  Country: US (occurrence: None)
  Receive Date: 20130815
  Receipt Date: 20130815
  Transmission Date: 20141002
  Serious: Yes (Other)
  Sender: FDA-Public Use
  Company Number: ADR-2012-00789

PATIENT
  Age: 49 Year
  Sex: Male

DRUGS (5)
  1. BACLOFEN INTRATHECAL (BACLOFEN INJECTION) [Suspect]
     Indication: PAIN
  2. BACLOFEN INTRATHECAL (BACLOFEN INJECTION) [Suspect]
     Indication: BACK PAIN
  3. BUPIVACAINE [Concomitant]
  4. CLONIDINE [Concomitant]
  5. FENTANYL [Concomitant]

REACTIONS (4)
  - Drug withdrawal syndrome [None]
  - No therapeutic response [None]
  - Pain [None]
  - Malaise [None]
